FAERS Safety Report 6181488-5 (Version None)
Quarter: 2009Q2

REPORT INFORMATION
  Report Type: 
  Country: None (occurrence: None)
  Receive Date: 20090506
  Receipt Date: 20090424
  Transmission Date: 20091009
  Serious: Yes (Hospitalization, Disabling)
  Sender: FDA-Public Use
  Company Number: DE-AVENTIS-200911103DE

PATIENT
  Age: 42 Year
  Sex: Female
  Weight: 100 kg

DRUGS (4)
  1. TAXOTERE [Suspect]
     Route: 042
     Dates: start: 20090420, end: 20090420
  2. GEMCITABINE [Suspect]
     Route: 042
     Dates: start: 20090420, end: 20090420
  3. GRANISETRON HCL [Concomitant]
     Indication: ANTIEMETIC SUPPORTIVE CARE
     Route: 030
     Dates: start: 20090420, end: 20090420
  4. DEXAMETHASONE TAB [Concomitant]
     Indication: ANTIEMETIC SUPPORTIVE CARE
     Route: 042
     Dates: start: 20090420, end: 20090420

REACTIONS (1)
  - ARTHRITIS [None]
